FAERS Safety Report 8041210-4 (Version None)
Quarter: 2012Q1

REPORT INFORMATION
  Report Type: 
  Country: None (occurrence: None)
  Receive Date: 20120112
  Receipt Date: 20120109
  Transmission Date: 20120608
  Serious: Yes (Other)
  Sender: FDA-Public Use
  Company Number: US-JNJFOC-20120102644

PATIENT
  Age: 28 Year
  Sex: Female

DRUGS (2)
  1. RISPERDAL [Suspect]
     Indication: PSYCHOTIC DISORDER
     Route: 048
     Dates: start: 20080101
  2. RISPERIDONE [Suspect]
     Indication: SCHIZOAFFECTIVE DISORDER
     Route: 048

REACTIONS (6)
  - FALL [None]
  - RESPIRATORY DISORDER [None]
  - EYE DISORDER [None]
  - OFF LABEL USE [None]
  - SCHIZOAFFECTIVE DISORDER [None]
  - OVERDOSE [None]
